FAERS Safety Report 10163037 (Version 1)
Quarter: 2014Q2

REPORT INFORMATION
  Report Type: Spontaneous
  Country: US (occurrence: US)
  Receive Date: 20140509
  Receipt Date: 20140509
  Transmission Date: 20141212
  Serious: Yes (Other)
  Sender: FDA-Public Use
  Company Number: US-PFIZER INC-2014126423

PATIENT
  Age: 68 Year
  Sex: Male

DRUGS (2)
  1. PHENYTOIN SODIUM [Suspect]
     Indication: CONVULSION
     Dosage: UNK
  2. LEVETIRACETAM [Suspect]
     Indication: PARTIAL SEIZURES
     Dosage: UNK

REACTIONS (5)
  - Dyskinesia [Recovered/Resolved]
  - Grimacing [Recovered/Resolved]
  - Blepharospasm [Recovered/Resolved]
  - Dystonia [Recovered/Resolved]
  - Oromandibular dystonia [Recovered/Resolved]
